FAERS Safety Report 4531005-8 (Version None)
Quarter: 2004Q4

REPORT INFORMATION
  Report Type: 
  Country: None (occurrence: None)
  Receive Date: 20041217
  Receipt Date: 20041202
  Transmission Date: 20050328
  Serious: Yes (Death, Life-Threatening)
  Sender: FDA-Public Use
  Company Number: JP-MERCK-0412USA00765

PATIENT
  Age: 87 Year
  Sex: Female
  Weight: 38 kg

DRUGS (5)
  1. PRIMAXIN [Suspect]
     Indication: ACUTE RESPIRATORY DISTRESS SYNDROME
     Route: 042
     Dates: start: 20041016, end: 20041019
  2. DIFLUCAN [Concomitant]
     Indication: ACUTE RESPIRATORY DISTRESS SYNDROME
     Route: 042
     Dates: start: 20041012, end: 20041021
  3. FAMOTIDINE [Concomitant]
     Route: 042
     Dates: start: 20041016, end: 20041030
  4. SOLU-MEDROL [Concomitant]
     Route: 042
     Dates: start: 20041016, end: 20041018
  5. LASIX [Concomitant]
     Indication: POLYURIA
     Route: 042
     Dates: start: 20041016

REACTIONS (2)
  - CONVULSION [None]
  - PNEUMONIA [None]
